FAERS Safety Report 11666754 (Version 1)
Quarter: 2015Q4

REPORT INFORMATION
  Report Type: Spontaneous
  Country: ZA (occurrence: ZA)
  Receive Date: 20151027
  Receipt Date: 20151027
  Transmission Date: 20160304
  Serious: Yes (Hospitalization)
  Sender: FDA-Public Use
  Company Number: ZA-JNJFOC-20151015501

PATIENT
  Sex: Female

DRUGS (1)
  1. REVELLEX [Suspect]
     Active Substance: INFLIXIMAB
     Indication: CROHN^S DISEASE
     Route: 042
     Dates: start: 20131008

REACTIONS (5)
  - Blood iron decreased [Unknown]
  - C-reactive protein abnormal [Unknown]
  - General physical condition abnormal [Unknown]
  - Intestinal perforation [Unknown]
  - Enterostomy [Unknown]

NARRATIVE: CASE EVENT DATE: 2015
